FAERS Safety Report 9632132 (Version 1)
Quarter: 2013Q4

REPORT INFORMATION
  Report Type: Spontaneous
  Country: US (occurrence: GB)
  Receive Date: 20131018
  Receipt Date: 20131018
  Transmission Date: 20140711
  Serious: Yes (Other)
  Sender: FDA-Public Use
  Company Number: GB-PFIZER INC-2013297407

PATIENT
  Age: 33 Year
  Sex: Male

DRUGS (2)
  1. FLUOROURACIL [Suspect]
     Indication: COLON CANCER
     Dosage: 930 MG -15 MG/KG BODY-WEIGHT ADDED TO 500 ML 5% DEXTROSE AND GIVEN INTRAVENOUSLY OVER 8 H DAILY
     Route: 042
  2. DEXTROSE [Concomitant]
     Dosage: 500 ML 5 % DEXTROSE
     Route: 042

REACTIONS (2)
  - Cardiotoxicity [Recovering/Resolving]
  - Pulmonary oedema [Recovering/Resolving]
